FAERS Safety Report 18231295 (Version 1)
Quarter: 2020Q3

REPORT INFORMATION
  Report Type: Spontaneous
  Country: US (occurrence: US)
  Receive Date: 20200904
  Receipt Date: 20200904
  Transmission Date: 20201103
  Serious: No
  Sender: FDA-Public Use
  Company Number: US-BIOGEN-2020BI00917908

PATIENT
  Sex: Female

DRUGS (3)
  1. TECFIDERA [Suspect]
     Active Substance: DIMETHYL FUMARATE
     Indication: MULTIPLE SCLEROSIS
     Route: 065
     Dates: start: 20130912, end: 20140210
  2. TECFIDERA [Suspect]
     Active Substance: DIMETHYL FUMARATE
     Route: 065
     Dates: start: 20140124, end: 20200617
  3. TECFIDERA [Suspect]
     Active Substance: DIMETHYL FUMARATE
     Route: 048

REACTIONS (16)
  - Confusional state [Unknown]
  - Contusion [Unknown]
  - Erythema [Unknown]
  - Communication disorder [Unknown]
  - Memory impairment [Unknown]
  - Peripheral swelling [Unknown]
  - Motor dysfunction [Unknown]
  - Eyelid function disorder [Unknown]
  - Decreased appetite [Unknown]
  - Dizziness [Unknown]
  - Mental impairment [Unknown]
  - Fatigue [Unknown]
  - Photophobia [Unknown]
  - Eye swelling [Unknown]
  - Personality change [Unknown]
  - Visual impairment [Unknown]
